FAERS Safety Report 7972647-7 (Version None)
Quarter: 2011Q4

REPORT INFORMATION
  Report Type: 
  Country: None (occurrence: None)
  Receive Date: 20111213
  Receipt Date: 20111207
  Transmission Date: 20120403
  Serious: Yes (Death, Hospitalization)
  Sender: FDA-Public Use
  Company Number: JP-JNJFOC-20100402642

PATIENT
  Sex: Female
  Weight: 40 kg

DRUGS (24)
  1. VOLTAREN [Concomitant]
     Route: 054
     Dates: start: 20090915
  2. HALCION [Concomitant]
     Route: 048
     Dates: start: 20090924
  3. PACETCOOL [Concomitant]
     Route: 042
     Dates: start: 20091002
  4. OXYCONTIN [Suspect]
     Indication: PRODUCT USED FOR UNKNOWN INDICATION
     Route: 048
     Dates: start: 20090826, end: 20090902
  5. DEPAS [Concomitant]
     Route: 048
  6. LORFENAMIN [Concomitant]
     Route: 048
  7. PROCHLORPERAZINE [Concomitant]
     Route: 048
     Dates: start: 20090902, end: 20090915
  8. DOXORUBICIN HCL [Suspect]
     Indication: OVARIAN CANCER RECURRENT
     Dosage: CYCLE 1
     Route: 042
     Dates: start: 20090819, end: 20090819
  9. CEFAZOLIN SODIUM [Concomitant]
     Route: 041
     Dates: start: 20090914, end: 20090924
  10. MUCOSTA [Concomitant]
     Route: 048
     Dates: start: 20090902, end: 20090915
  11. DEXALTIN [Concomitant]
     Route: 049
     Dates: start: 20091011
  12. BETAMETHASONE [Concomitant]
     Route: 042
     Dates: start: 20090923
  13. FAMOTIDINE [Concomitant]
     Route: 048
  14. ZOLPIDEM [Concomitant]
     Route: 048
  15. NEUTROGIN [Concomitant]
     Indication: WHITE BLOOD CELL COUNT DECREASED
     Route: 058
     Dates: start: 20090907, end: 20090909
  16. PRIMPERAN TAB [Concomitant]
     Route: 042
     Dates: start: 20090922
  17. ZYPREXA [Concomitant]
     Route: 048
     Dates: start: 20090918
  18. BROTIZOLAN [Concomitant]
     Route: 048
     Dates: start: 20090928
  19. UNASYN [Concomitant]
     Route: 042
     Dates: start: 20090925, end: 20090929
  20. SENNOSIDE [Concomitant]
     Route: 048
  21. MS ONSHIPPU [Concomitant]
     Route: 062
  22. ANPEC [Concomitant]
     Route: 054
     Dates: start: 20091013
  23. CALCIUM CARBONATE [Concomitant]
     Route: 042
     Dates: start: 20090922, end: 20090929
  24. PRIMPERAN TAB [Concomitant]
     Route: 048
     Dates: start: 20090327, end: 20091122

REACTIONS (8)
  - C-REACTIVE PROTEIN INCREASED [None]
  - DYSPNOEA [None]
  - PYREXIA [None]
  - DYSPHONIA [None]
  - OVARIAN CANCER [None]
  - DISSEMINATED INTRAVASCULAR COAGULATION [None]
  - DYSPHAGIA [None]
  - WHITE BLOOD CELL COUNT DECREASED [None]
